FAERS Safety Report 6310532-7 (Version None)
Quarter: 2009Q3

REPORT INFORMATION
  Report Type: 
  Country: None (occurrence: None)
  Receive Date: 20090814
  Receipt Date: 20090804
  Transmission Date: 20100115
  Serious: Yes (Hospitalization)
  Sender: FDA-Public Use
  Company Number: US-ABBOTT-08P-163-0486860-00

PATIENT
  Sex: Female
  Weight: 57.204 kg

DRUGS (2)
  1. LUPRON DEPOT [Suspect]
     Indication: ENDOMETRIOSIS
     Route: 050
     Dates: start: 20080601, end: 20081029
  2. LUPRON DEPOT [Suspect]
     Dates: start: 20090101

REACTIONS (4)
  - ABORTION INDUCED [None]
  - INCORRECT DRUG ADMINISTRATION DURATION [None]
  - URINARY TRACT INFECTION [None]
  - VOMITING [None]
